FAERS Safety Report 6339112-4 (Version None)
Quarter: 2009Q3

REPORT INFORMATION
  Report Type: 
  Country: None (occurrence: None)
  Receive Date: 20090831
  Receipt Date: 20090615
  Transmission Date: 20100115
  Serious: No
  Sender: FDA-Public Use
  Company Number: MC200900145

PATIENT
  Age: 66 Year
  Sex: Female
  Weight: 92 kg

DRUGS (9)
  1. CLEVIPREX [Suspect]
     Indication: HYPERTENSION
     Dosage: 1 MG, HR, INTRAVENOUS; 1.5 MGHR; 2 MG, HR, INTRAVENOUS
     Route: 042
     Dates: start: 20090413, end: 20090413
  2. CLEVIPREX [Suspect]
     Indication: HYPERTENSION
     Dosage: 1 MG, HR, INTRAVENOUS; 1.5 MGHR; 2 MG, HR, INTRAVENOUS
     Route: 042
     Dates: start: 20090413, end: 20090414
  3. CLEVIPREX [Suspect]
     Indication: HYPERTENSION
     Dosage: 1 MG, HR, INTRAVENOUS; 1.5 MGHR; 2 MG, HR, INTRAVENOUS
     Route: 042
     Dates: start: 20090414, end: 20090414
  4. DEXTROSE 5% AND POTASSIUM CHLORIDE 0.075% IN PLASTIC CONTAINER [Suspect]
     Dosage: D50/30KCL
  5. INSULIN [Concomitant]
  6. ANESTHETICS NOS [Concomitant]
  7. NEOSYNEPHRINE (PHENYLEPHRINE HYDROCHLORIDE) [Concomitant]
  8. NITRO /00003201/ (GLYCERYL TRINITRATE) [Concomitant]
  9. AMIKACIN [Concomitant]

REACTIONS (1)
  - BLOOD GLUCOSE INCREASED [None]
